FAERS Safety Report 6121991 (Version 2)
Quarter: 2013Q1

REPORT INFORMATION
  Report Type: Spontaneous
  Country: ES (occurrence: None)
  Receive Date: 20060823
  Receipt Date: 20130207
  Transmission Date: 20140127
  Serious: Yes (Death, Life-Threatening, Other)
  Sender: FDA-Public Use
  Company Number: 2006US-03321

PATIENT
  Sex: Female

DRUGS (7)
  1. ZIDOVUDINE [Suspect]
     Indication: ANTIRETROVIRAL THERAPY
     Dates: start: 200207
  2. ABACAVIR [Suspect]
     Indication: ANTIRETROVIRAL THERAPY
     Dates: start: 200207
  3. LAMIVUDINE [Suspect]
     Indication: ANTIRETROVIRAL THERAPY
     Dates: start: 200207
  4. LAMIVUDINE [Suspect]
     Indication: ANTIRETROVIRAL THERAPY
  5. FOSCARNET [Suspect]
     Indication: CYTOMEGALOVIRUS COLITIS
  6. GANCICLOVIR [Suspect]
     Indication: CYTOMEGALOVIRUS COLITIS
  7. CIDOFOVIR [Concomitant]

REACTIONS (11)
  - Encephalitis [None]
  - Adrenal cortex necrosis [None]
  - Disseminated cytomegaloviral infection [None]
  - Pneumocystis jirovecii pneumonia [None]
  - Interstitial lung disease [None]
  - Adrenalitis [None]
  - Hyponatraemia [None]
  - Thymus disorder [None]
  - Drug resistance [None]
  - Pneumonia cytomegaloviral [None]
  - Cytomegalovirus chorioretinitis [None]
